FAERS Safety Report 12233978 (Version 1)
Quarter: 2016Q2

REPORT INFORMATION
  Report Type: Spontaneous
  Country: US (occurrence: None)
  Receive Date: 20160401
  Receipt Date: 20160401
  Transmission Date: 20160815
  Serious: Yes (Life-Threatening, Hospitalization)
  Sender: FDA-Public Use
  Company Number: None

PATIENT
  Age: 88 Year
  Sex: Female
  Weight: 54.43 kg

DRUGS (6)
  1. CALCIUM [Concomitant]
     Active Substance: CALCIUM
  2. SODIUM [Concomitant]
     Active Substance: SODIUM
  3. LASIX [Concomitant]
     Active Substance: FUROSEMIDE
  4. CALCIUM CHANNEL BLOCKER [Concomitant]
     Active Substance: UNSPECIFIED INGREDIENT
  5. CITRACEL [Concomitant]
  6. FLOUROSCEIN [Suspect]
     Active Substance: FLUORESCEIN
     Indication: RETINAL DISORDER
     Dosage: INTO A VEIN
     Route: 030

REACTIONS (9)
  - Urinary incontinence [None]
  - Feeling hot [None]
  - Lip swelling [None]
  - Loss of consciousness [None]
  - Pruritus [None]
  - Rash erythematous [None]
  - Swollen tongue [None]
  - Swelling face [None]
  - Hyperhidrosis [None]

NARRATIVE: CASE EVENT DATE: 20140410
